FAERS Safety Report 4277610-8 (Version None)
Quarter: 2004Q1

REPORT INFORMATION
  Report Type: 
  Country: None (occurrence: None)
  Receive Date: 20040121
  Receipt Date: 20040108
  Transmission Date: 20041129
  Serious: Yes (Other)
  Sender: FDA-Public Use
  Company Number: 2003116124

PATIENT
  Age: 27 Year
  Sex: Male

DRUGS (1)
  1. NEURONTIN [Suspect]
     Indication: NEUROPATHIC PAIN
     Dosage: 300 MG (DAILY), ORAL
     Route: 048
     Dates: start: 20010905

REACTIONS (7)
  - ABNORMAL DREAMS [None]
  - ANGINA PECTORIS [None]
  - FEELING ABNORMAL [None]
  - HALLUCINATION [None]
  - HEART RATE INCREASED [None]
  - SUICIDAL IDEATION [None]
  - TREMOR [None]
